FAERS Safety Report 5443816-5 (Version None)
Quarter: 2007Q3

REPORT INFORMATION
  Report Type: 
  Country: None (occurrence: None)
  Receive Date: 20070905
  Receipt Date: 20070825
  Transmission Date: 20080115
  Serious: Yes (Other)
  Sender: FDA-Public Use
  Company Number: US-PFIZER INC-2007063737

PATIENT
  Sex: Male
  Weight: 113.4 kg

DRUGS (8)
  1. NORVASC [Suspect]
     Indication: HYPERTENSION
  2. NORVASC [Suspect]
  3. GLUCOTROL [Concomitant]
  4. CLONAZEPAM [Concomitant]
  5. GEZOR [Concomitant]
  6. PLAVIX [Concomitant]
  7. TOPROL-XL [Concomitant]
  8. FOLIC ACID [Concomitant]

REACTIONS (3)
  - BLOOD GLUCOSE INCREASED [None]
  - CARDIAC DISORDER [None]
  - DRUG INEFFECTIVE [None]
